FAERS Safety Report 4505289-6 (Version None)
Quarter: 2004Q4

REPORT INFORMATION
  Report Type: 
  Country: None (occurrence: None)
  Receive Date: 20041118
  Receipt Date: 20041118
  Transmission Date: 20050328
  Serious: Yes (Life-Threatening, Hospitalization)
  Sender: FDA-Public Use
  Company Number: None

PATIENT
  Age: 43 Year
  Sex: Female
  Weight: 69 kg

DRUGS (3)
  1. TAXOTERE [Suspect]
     Indication: GASTRIC CANCER
     Dosage: 30 IV
     Route: 042
     Dates: start: 20030711, end: 20040130
  2. CISPLATIN [Suspect]
     Indication: GASTRIC CANCER
     Dosage: 25 IV
     Route: 042
     Dates: start: 20030711, end: 20040130
  3. CPT-11 (MG/M2) DAYS 1 AND 8 OF 21 DAY CYCLE [Suspect]
     Indication: GASTRIC CANCER
     Dosage: 50 IV
     Route: 042
     Dates: start: 20030711, end: 20040130

REACTIONS (2)
  - DISEASE PROGRESSION [None]
  - PULMONARY EMBOLISM [None]
